FAERS Safety Report 25271534 (Version 1)
Quarter: 2025Q2

REPORT INFORMATION
  Report Type: Report from Study
  Country: CO (occurrence: CO)
  Receive Date: 20250506
  Receipt Date: 20250506
  Transmission Date: 20250717
  Serious: Yes (Hospitalization)
  Sender: ABBVIE
  Company Number: CO-ABBVIE-6262853

PATIENT
  Age: 62 Year
  Sex: Female
  Weight: 61 kg

DRUGS (1)
  1. RINVOQ [Suspect]
     Active Substance: UPADACITINIB
     Indication: Rheumatoid arthritis
     Dosage: RINVOQ BOTTLE 15MG
     Route: 048
     Dates: start: 20250101

REACTIONS (3)
  - Choking [Recovering/Resolving]
  - Cough [Recovering/Resolving]
  - Bronchitis viral [Unknown]

NARRATIVE: CASE EVENT DATE: 20250101
